FAERS Safety Report 9970760 (Version 2)
Quarter: 2014Q1

REPORT INFORMATION
  Report Type: Report from Study
  Country: PR (occurrence: PR)
  Receive Date: 20140306
  Receipt Date: 20140306
  Transmission Date: 20141002
  Serious: Yes (Hospitalization)
  Sender: FDA-Public Use
  Company Number: PR-ABBVIE-13P-131-1145719-00

PATIENT
  Age: 26 Year
  Sex: Female
  Weight: 84.44 kg

DRUGS (4)
  1. HUMIRA [Suspect]
     Indication: PSORIATIC ARTHROPATHY
     Route: 058
     Dates: start: 201302, end: 20130821
  2. HUMIRA [Suspect]
     Dosage: CHANGE ADMINISTRATION DATE
     Route: 058
     Dates: start: 20130911
  3. METHOTREXATE [Concomitant]
     Indication: PSORIATIC ARTHROPATHY
     Route: 048
  4. FOLIC ACID [Concomitant]
     Indication: PSORIATIC ARTHROPATHY

REACTIONS (1)
  - Dengue fever [Recovered/Resolved]
